FAERS Safety Report 22236251 (Version 2)
Quarter: 2023Q2

REPORT INFORMATION
  Report Type: Spontaneous
  Country: TR (occurrence: TR)
  Receive Date: 20230420
  Receipt Date: 20230504
  Transmission Date: 20230722
  Serious: Yes (Other)
  Sender: FDA-Public Use
  Company Number: TR-TEVA-2023-TR-2877808

PATIENT
  Age: 45 Year
  Sex: Female

DRUGS (2)
  1. METHOTREXATE [Suspect]
     Active Substance: METHOTREXATE
     Indication: Psoriasis
     Route: 065
  2. SECUKINUMAB [Suspect]
     Active Substance: SECUKINUMAB
     Indication: Psoriasis
     Route: 058

REACTIONS (4)
  - Paradoxical psoriasis [Recovered/Resolved]
  - Palmoplantar pustulosis [Recovered/Resolved]
  - Pustular psoriasis [Recovered/Resolved]
  - Drug ineffective [Unknown]
